FAERS Safety Report 6292785-7 (Version None)
Quarter: 2009Q3

REPORT INFORMATION
  Report Type: 
  Country: None (occurrence: None)
  Receive Date: 20090731
  Receipt Date: 20090720
  Transmission Date: 20100115
  Serious: Yes (Hospitalization)
  Sender: FDA-Public Use
  Company Number: FR-NOVOPROD-289651

PATIENT
  Age: 49 Year
  Sex: Female

DRUGS (2)
  1. LEVEMIR [Suspect]
     Indication: INTENTIONAL OVERDOSE
     Dates: start: 20090717, end: 20090717
  2. EFFEXOR [Concomitant]
     Indication: DEPRESSION

REACTIONS (3)
  - HYPOGLYCAEMIC COMA [None]
  - INTENTIONAL OVERDOSE [None]
  - SUICIDE ATTEMPT [None]
